FAERS Safety Report 9240347 (Version 1)
Quarter: 2013Q1

REPORT INFORMATION
  Report Type: Spontaneous
  Country: US (occurrence: None)
  Receive Date: 20121120
  Receipt Date: 20121120
  Transmission Date: 20140127
  Serious: Yes (Other)
  Sender: FDA-Public Use
  Company Number: 1000039006

PATIENT
  Age: 55 Year
  Sex: Female

DRUGS (5)
  1. VIIBRYD [Suspect]
     Indication: DEPRESSION
     Dosage: 10 MG (10 MG, 1 IN 1 D)
     Dates: start: 201209, end: 201209
  2. VIIBRYD [Suspect]
     Indication: DEPRESSION
     Dosage: 20 MG (20 MG, 1 IN 1 D)
     Dates: start: 201209, end: 20120926
  3. BENICAR [Concomitant]
  4. SPIRONOLACTONE [Concomitant]
  5. HERBES NOS (HERBS NOS) (HERBS NOS) [Concomitant]

REACTIONS (1)
  - Serotonin syndrome [None]
